FAERS Safety Report 9199467 (Version 3)
Quarter: 2013Q2

REPORT INFORMATION
  Report Type: Spontaneous
  Country: JP (occurrence: JP)
  Receive Date: 20130329
  Receipt Date: 20130506
  Transmission Date: 20140414
  Serious: Yes (Other)
  Sender: FDA-Public Use
  Company Number: JP-AMGEN-JPNSP2013021526

PATIENT
  Age: 72 Year
  Sex: Female
  Weight: 67 kg

DRUGS (15)
  1. ENBREL [Suspect]
     Indication: RHEUMATOID ARTHRITIS
     Dosage: 25 MG, 2 TIMES/WK
     Route: 058
     Dates: start: 20120718, end: 20120904
  2. RHEUMATREX /00113802/ [Suspect]
     Indication: RHEUMATOID ARTHRITIS
     Dosage: 6 MG, QWK
     Route: 048
     Dates: start: 20110316, end: 20110823
  3. RHEUMATREX /00113802/ [Suspect]
     Dosage: 12 MG, ALTERNATIVE WEEKLY
     Dates: start: 20110824, end: 20120905
  4. RHEUMATREX /00113802/ [Suspect]
     Dosage: 10 MG, ALTERNATIVE WEEKLY
     Dates: start: 20110824, end: 20120905
  5. HUMIRA [Suspect]
     Indication: RHEUMATOID ARTHRITIS
     Dosage: 40 MG EVERY OTHER WEEK
     Route: 058
     Dates: start: 20120104, end: 20120717
  6. FOLIAMIN [Concomitant]
     Indication: PROPHYLAXIS
     Dosage: 5 MG, WEEKLY
     Route: 048
     Dates: start: 20120104, end: 20120717
  7. GASLON N [Concomitant]
     Indication: PROPHYLAXIS
     Dosage: 4 MG, 2X/DAY
     Route: 048
     Dates: end: 20120904
  8. TAKEPRON [Concomitant]
     Indication: PROPHYLAXIS
     Dosage: 15 MG, 1X/DAY
     Route: 048
     Dates: start: 20081006
  9. FOSAMAC [Concomitant]
     Indication: RHEUMATOID ARTHRITIS
     Dosage: 35 MG, WEEKLY
     Route: 048
     Dates: start: 20081105, end: 20120904
  10. CELECOX [Concomitant]
     Indication: RHEUMATOID ARTHRITIS
     Dosage: 400 MG, 2X/DAY
     Route: 048
     Dates: start: 20100804, end: 20120904
  11. PURSENNID /00142207/ [Concomitant]
     Indication: CONSTIPATION
     Dosage: 12 MG, 1X/DAY
     Route: 048
     Dates: start: 20081006
  12. THYRADIN [Concomitant]
     Dosage: 50 UG, 1X/DAY
     Route: 048
     Dates: start: 20081006
  13. URSO                               /00465701/ [Concomitant]
     Dosage: 300 MG, 3X/DAY
     Route: 048
     Dates: start: 20081006
  14. MYONAL                             /00287502/ [Concomitant]
     Dosage: 150 MG, 3X/DAY
     Route: 048
     Dates: start: 20100915
  15. LIPITOR [Concomitant]
     Dosage: 10 MG, 1X/DAY
     Route: 048
     Dates: start: 20081006

REACTIONS (3)
  - Diffuse large B-cell lymphoma [Recovering/Resolving]
  - Malaise [Recovered/Resolved]
  - Drug ineffective [Unknown]
